FAERS Safety Report 9934545 (Version 1)
Quarter: 2014Q1

REPORT INFORMATION
  Report Type: Spontaneous
  Country: US (occurrence: US)
  Receive Date: 20140228
  Receipt Date: 20140228
  Transmission Date: 20141002
  Serious: No
  Sender: FDA-Public Use
  Company Number: US-ASTRAZENECA-2013SE80676

PATIENT
  Age: 72 Year
  Sex: Female
  Weight: 56.7 kg

DRUGS (2)
  1. TOPROL-XL [Suspect]
     Indication: CARDIAC DISORDER
     Route: 048
  2. TOPROL-XL [Suspect]
     Indication: CARDIAC DISORDER
     Route: 048

REACTIONS (2)
  - Pruritus [Unknown]
  - Off label use [Unknown]
